FAERS Safety Report 4364522-4 (Version None)
Quarter: 2004Q2

REPORT INFORMATION
  Report Type: 
  Country: None (occurrence: None)
  Receive Date: 20040521
  Receipt Date: 20040512
  Transmission Date: 20050107
  Serious: Yes (Hospitalization)
  Sender: FDA-Public Use
  Company Number: 2004-02080

PATIENT
  Age: 70 Year
  Sex: Female
  Weight: 72 kg

DRUGS (9)
  1. HEPARIN SODIUM [Suspect]
     Indication: PULMONARY EMBOLISM
     Dosage: SEE IMAGE
     Route: 042
  2. ALBUTEROL [Concomitant]
  3. KETOROLAC [Concomitant]
  4. ONDANSETRON HCL [Concomitant]
  5. MORPHINE [Concomitant]
  6. MEPERIDINE HCL [Concomitant]
  7. CEFAZOLIN [Concomitant]
  8. HALOPERIDOL [Concomitant]
  9. PANTOPRAZOLE (PANTOPRAZOLE) [Concomitant]

REACTIONS (1)
  - HYPONATRAEMIA [None]
